FAERS Safety Report 14899677 (Version 2)
Quarter: 2018Q3

REPORT INFORMATION
  Report Type: Spontaneous
  Country: GB (occurrence: GB)
  Receive Date: 20180516
  Receipt Date: 20180802
  Transmission Date: 20181010
  Serious: Yes (Hospitalization)
  Sender: FDA-Public Use
  Company Number: GB-TEVA-2018-GB-893401

PATIENT
  Age: 49 Year
  Sex: Female
  Weight: 52 kg

DRUGS (3)
  1. ECHINACEA [Suspect]
     Active Substance: ECHINACEA, UNSPECIFIED
     Route: 065
  2. CO?AMOXICLAV [Suspect]
     Active Substance: AMOXICILLIN\CLAVULANATE POTASSIUM
     Indication: ABDOMINAL DISCOMFORT
     Route: 065
     Dates: start: 20180306
  3. FLUCLOXACILLIN [Suspect]
     Active Substance: FLUCLOXACILLIN
     Indication: POSTOPERATIVE CARE
     Route: 065
     Dates: start: 20180207

REACTIONS (5)
  - Fatigue [Not Recovered/Not Resolved]
  - Drug-induced liver injury [Recovering/Resolving]
  - Nausea [Unknown]
  - Malaise [Not Recovered/Not Resolved]
  - Abdominal discomfort [Unknown]

NARRATIVE: CASE EVENT DATE: 20180208
